FAERS Safety Report 8136618-2 (Version None)
Quarter: 2012Q1

REPORT INFORMATION
  Report Type: 
  Country: None (occurrence: None)
  Receive Date: 20120214
  Receipt Date: 20120202
  Transmission Date: 20120608
  Serious: Yes (Hospitalization, Other)
  Sender: FDA-Public Use
  Company Number: DE-ELI_LILLY_AND_COMPANY-DE201202000546

PATIENT
  Age: 31 Year
  Sex: Female

DRUGS (2)
  1. CITALOPRAM HYDROBROMIDE [Concomitant]
     Dosage: 40 MG, UNK
     Dates: start: 20110501
  2. ZYPREXA [Suspect]
     Indication: ANXIETY DISORDER
     Dosage: 5 MG, BID
     Route: 048
     Dates: start: 20120101

REACTIONS (4)
  - WEIGHT INCREASED [None]
  - OFF LABEL USE [None]
  - HOSPITALISATION [None]
  - FATIGUE [None]
